FAERS Safety Report 7609977 (Version 34)
Quarter: 2025Q2

REPORT INFORMATION
  Report Type: Report from Study
  Country: JP (occurrence: JP)
  Receive Date: 20100928
  Receipt Date: 20250625
  Transmission Date: 20250716
  Serious: Yes (Hospitalization, Other)
  Sender: JOHNSON AND JOHNSON
  Company Number: JP-JNJFOC-20100907113

PATIENT
  Age: 49 Year
  Sex: Male

DRUGS (68)
  1. PREZISTA [Suspect]
     Active Substance: DARUNAVIR ETHANOLATE
     Indication: HIV infection
     Route: 048
     Dates: start: 20061111
  2. PREZISTA [Suspect]
     Active Substance: DARUNAVIR ETHANOLATE
     Route: 048
     Dates: start: 20170223, end: 20240202
  3. INTELENCE [Suspect]
     Active Substance: ETRAVIRINE
     Indication: HIV infection
     Route: 048
     Dates: start: 20081011
  4. INTELENCE [Suspect]
     Active Substance: ETRAVIRINE
     Route: 048
     Dates: start: 20170223, end: 20220927
  5. NORVIR [Suspect]
     Active Substance: RITONAVIR
     Indication: HIV infection
     Route: 048
     Dates: start: 19961218, end: 19970924
  6. NORVIR [Suspect]
     Active Substance: RITONAVIR
     Route: 048
     Dates: start: 19990819
  7. NORVIR [Suspect]
     Active Substance: RITONAVIR
     Route: 048
     Dates: start: 20110608
  8. NORVIR [Suspect]
     Active Substance: RITONAVIR
     Route: 048
     Dates: start: 20170223, end: 20240202
  9. NORVIR [Suspect]
     Active Substance: RITONAVIR
     Indication: HIV infection
     Route: 048
     Dates: start: 20000401, end: 20001228
  10. NORVIR [Suspect]
     Active Substance: RITONAVIR
     Route: 048
     Dates: start: 20060411, end: 20110606
  11. VIDEX [Suspect]
     Active Substance: DIDANOSINE
     Indication: HIV infection
     Route: 048
     Dates: start: 19951018, end: 19951206
  12. VIDEX [Suspect]
     Active Substance: DIDANOSINE
     Route: 048
     Dates: start: 19951206, end: 19960313
  13. VIDEX [Suspect]
     Active Substance: DIDANOSINE
     Route: 048
     Dates: start: 19960313, end: 19970924
  14. VIDEX [Suspect]
     Active Substance: DIDANOSINE
     Route: 048
     Dates: start: 19960724, end: 19970924
  15. VIDEX [Suspect]
     Active Substance: DIDANOSINE
     Route: 048
     Dates: start: 20001229, end: 20060410
  16. KALETRA [Suspect]
     Active Substance: LOPINAVIR\RITONAVIR
     Indication: HIV infection
     Route: 048
     Dates: start: 20001229, end: 20060410
  17. DESCOVY [Suspect]
     Active Substance: EMTRICITABINE\TENOFOVIR ALAFENAMIDE FUMARATE
     Indication: HIV infection
     Route: 048
     Dates: start: 20170223, end: 20240202
  18. ISENTRESS [Suspect]
     Active Substance: RALTEGRAVIR POTASSIUM
     Indication: HIV infection
     Route: 048
     Dates: start: 20080401, end: 20220927
  19. BIKTARVY [Suspect]
     Active Substance: BICTEGRAVIR SODIUM\EMTRICITABINE\TENOFOVIR ALAFENAMIDE FUMARATE
     Indication: HIV infection
     Route: 048
     Dates: start: 20240202
  20. TIVICAY [Concomitant]
     Active Substance: DOLUTEGRAVIR SODIUM
     Indication: HIV infection
     Route: 048
     Dates: start: 20220928, end: 20240202
  21. PIFELTRO [Concomitant]
     Active Substance: DORAVIRINE
     Indication: HIV infection
     Route: 048
     Dates: start: 20220928
  22. TRUVADA [Concomitant]
     Active Substance: EMTRICITABINE\TENOFOVIR DISOPROXIL FUMARATE
     Indication: HIV infection
     Route: 048
     Dates: start: 20060411, end: 20170222
  23. TRUVADA [Concomitant]
     Active Substance: EMTRICITABINE\TENOFOVIR DISOPROXIL FUMARATE
     Route: 048
     Dates: start: 20170223
  24. ZERIT [Concomitant]
     Active Substance: STAVUDINE
     Indication: HIV infection
     Route: 048
     Dates: start: 19970924, end: 19990818
  25. ZERIT [Concomitant]
     Active Substance: STAVUDINE
     Route: 048
     Dates: start: 20001229, end: 20060410
  26. LEXIVA [Concomitant]
     Active Substance: FOSAMPRENAVIR CALCIUM
     Indication: HIV infection
     Route: 048
     Dates: start: 20051111, end: 20060410
  27. INVIRASE [Concomitant]
     Active Substance: SAQUINAVIR MESYLATE
     Indication: HIV infection
     Route: 048
     Dates: start: 19990819, end: 20001228
  28. EPIVIR [Concomitant]
     Active Substance: LAMIVUDINE
     Indication: HIV infection
     Route: 048
     Dates: start: 19970924, end: 19990818
  29. ZIAGEN [Concomitant]
     Active Substance: ABACAVIR SULFATE
     Indication: HIV infection
     Route: 048
     Dates: start: 19990819, end: 20001228
  30. EFAVIRENZ [Concomitant]
     Active Substance: EFAVIRENZ
     Indication: HIV infection
     Route: 048
     Dates: start: 19990819, end: 20040331
  31. VIRACEPT [Concomitant]
     Active Substance: NELFINAVIR MESYLATE
     Indication: HIV infection
     Route: 048
     Dates: start: 19970924, end: 19990818
  32. AMPRENAVIR [Concomitant]
     Active Substance: AMPRENAVIR
     Indication: HIV infection
     Route: 048
     Dates: start: 20040401, end: 20051110
  33. RETROVIR [Concomitant]
     Active Substance: ZIDOVUDINE
     Indication: HIV infection
     Route: 048
     Dates: start: 19960313, end: 19970924
  34. LENACAPAVIR [Concomitant]
     Active Substance: LENACAPAVIR
     Indication: HIV infection
     Dosage: DAY1
     Route: 048
     Dates: start: 20240119, end: 20240119
  35. LENACAPAVIR [Concomitant]
     Active Substance: LENACAPAVIR
     Route: 048
     Dates: start: 20240120, end: 20240120
  36. LENACAPAVIR [Concomitant]
     Active Substance: LENACAPAVIR
     Route: 048
     Dates: start: 20240126, end: 20240126
  37. LENACAPAVIR [Concomitant]
     Active Substance: LENACAPAVIR
     Indication: HIV infection
     Route: 048
     Dates: start: 20240202, end: 20240202
  38. URSO [Concomitant]
     Active Substance: URSODIOL
     Indication: Liver disorder
     Route: 048
     Dates: start: 20070401, end: 20150224
  39. URSO [Concomitant]
     Active Substance: URSODIOL
     Route: 048
     Dates: start: 20150826
  40. CROSS EIGHT M [Concomitant]
     Active Substance: ANTIHEMOPHILIC FACTOR HUMAN
     Indication: Factor VIII deficiency
     Route: 065
     Dates: end: 20100804
  41. RABEPRAZOLE SODIUM [Concomitant]
     Active Substance: RABEPRAZOLE SODIUM
     Indication: Gastritis
     Route: 048
     Dates: start: 20080924, end: 20120331
  42. RABEPRAZOLE SODIUM [Concomitant]
     Active Substance: RABEPRAZOLE SODIUM
     Route: 048
     Dates: start: 20120401, end: 20130821
  43. RABEPRAZOLE SODIUM [Concomitant]
     Active Substance: RABEPRAZOLE SODIUM
     Route: 048
     Dates: start: 20140319
  44. CARBOCYSTEINE [Concomitant]
     Active Substance: CARBOCYSTEINE
     Indication: Bronchitis chronic
     Route: 048
     Dates: start: 20090617, end: 20150224
  45. CARBOCYSTEINE [Concomitant]
     Active Substance: CARBOCYSTEINE
     Route: 048
     Dates: start: 20170223, end: 20181225
  46. CARBOCYSTEINE [Concomitant]
     Active Substance: CARBOCYSTEINE
     Route: 048
     Dates: start: 20190227
  47. ADYNOVATE [Concomitant]
     Active Substance: ANTIHEMOPHILIC FACTOR, HUMAN RECOMBINANT
     Indication: Factor VIII deficiency
     Route: 065
     Dates: start: 20181128
  48. VESICARE [Concomitant]
     Active Substance: SOLIFENACIN SUCCINATE
     Indication: Product used for unknown indication
     Route: 048
     Dates: start: 20191030
  49. AMIKACIN SULFATE [Concomitant]
     Active Substance: AMIKACIN SULFATE
     Indication: Pyelonephritis
     Route: 065
     Dates: start: 20150410, end: 20150415
  50. FAROPENEM SODIUM [Concomitant]
     Active Substance: FAROPENEM SODIUM
     Indication: Pyelonephritis
     Route: 048
     Dates: start: 20150416, end: 20150429
  51. ASTAT:SOL. [Concomitant]
     Indication: Tinea infection
     Route: 065
     Dates: start: 20170223
  52. BONALON:JELLY [Concomitant]
     Indication: Osteoporosis
     Route: 048
     Dates: start: 20170628
  53. PROGRAF [Concomitant]
     Active Substance: TACROLIMUS
     Indication: Liver transplant
     Route: 065
     Dates: start: 202402
  54. CELLCEPT [Concomitant]
     Active Substance: MYCOPHENOLATE MOFETIL
     Indication: Liver transplant
     Route: 065
     Dates: start: 202402
  55. TACROLIMUS [Concomitant]
     Active Substance: TACROLIMUS
     Indication: Liver transplant
     Route: 065
     Dates: start: 20241016
  56. PREDNISOLONE [Concomitant]
     Active Substance: PREDNISOLONE
     Indication: Liver transplant
     Route: 065
     Dates: start: 202402, end: 20240606
  57. MIYA-BM [Concomitant]
     Active Substance: CLOSTRIDIUM BUTYRICUM SPORES STRAIN M-55
     Indication: Product used for unknown indication
     Route: 065
     Dates: start: 202402
  58. VONOPRAZAN FUMARATE [Concomitant]
     Active Substance: VONOPRAZAN FUMARATE
     Indication: Product used for unknown indication
     Route: 065
     Dates: start: 202402
  59. SITAGLIPTIN [Concomitant]
     Active Substance: SITAGLIPTIN
     Indication: Product used for unknown indication
     Route: 065
     Dates: start: 20240626
  60. REPAGLINIDE [Concomitant]
     Active Substance: REPAGLINIDE
     Indication: Product used for unknown indication
     Route: 065
     Dates: start: 20240422, end: 20241017
  61. MIRABEGRON [Concomitant]
     Active Substance: MIRABEGRON
     Indication: Product used for unknown indication
     Route: 065
     Dates: start: 20241015
  62. ADVATE [Concomitant]
     Active Substance: ANTIHEMOPHILIC FACTOR, HUMAN RECOMBINANT
     Indication: Factor VIII deficiency
     Route: 042
     Dates: start: 20100805
  63. ADVATE [Concomitant]
     Active Substance: ANTIHEMOPHILIC FACTOR, HUMAN RECOMBINANT
     Route: 042
     Dates: start: 20140401
  64. ADVATE [Concomitant]
     Active Substance: ANTIHEMOPHILIC FACTOR, HUMAN RECOMBINANT
     Route: 042
     Dates: start: 20170223, end: 20181127
  65. AMINO ACIDS, SOURCE UNSPECIFIED [Concomitant]
     Active Substance: AMINO ACIDS, SOURCE UNSPECIFIED
     Indication: Liver disorder
     Dosage: 1 PACKAGE
     Route: 048
     Dates: start: 20090803
  66. MEROPENEM [Concomitant]
     Active Substance: MEROPENEM
     Indication: Pyelonephritis
     Route: 041
     Dates: start: 20150407, end: 20150410
  67. MEROPENEM [Concomitant]
     Active Substance: MEROPENEM
     Route: 041
     Dates: start: 20150411, end: 20150415
  68. FERROUS SULFATE [Concomitant]
     Active Substance: FERROUS SULFATE
     Indication: Product used for unknown indication
     Route: 065
     Dates: start: 20240717

REACTIONS (9)
  - Hepatocellular carcinoma [Recovered/Resolved]
  - Pyelonephritis [Recovered/Resolved]
  - Drug resistance [Not Recovered/Not Resolved]
  - Hepatocellular carcinoma [Recovered/Resolved]
  - Type 2 diabetes mellitus [Not Recovered/Not Resolved]
  - Hyperbilirubinaemia [Recovered/Resolved]
  - Dyslipidaemia [Recovered/Resolved]
  - Anaemia [Recovered/Resolved]
  - Osteoporosis [Not Recovered/Not Resolved]

NARRATIVE: CASE EVENT DATE: 20061128
